FAERS Safety Report 9387103 (Version 1)
Quarter: 2013Q3

REPORT INFORMATION
  Report Type: Spontaneous
  Country: US (occurrence: None)
  Receive Date: 20130703
  Receipt Date: 20130703
  Transmission Date: 20140515
  Serious: Yes (Other)
  Sender: FDA-Public Use
  Company Number: None

PATIENT
  Age: 53 Year
  Sex: Female
  Weight: 78.02 kg

DRUGS (1)
  1. PREMARIN [Suspect]
     Indication: VULVOVAGINAL PAIN
     Route: 067
     Dates: start: 20041224, end: 20041231

REACTIONS (3)
  - Dyspepsia [None]
  - Cardiomegaly [None]
  - Angina pectoris [None]
